FAERS Safety Report 23941148 (Version 1)
Quarter: 2024Q2

REPORT INFORMATION
  Report Type: Spontaneous
  Country: US (occurrence: US)
  Receive Date: 20240605
  Receipt Date: 20240605
  Transmission Date: 20240716
  Serious: Yes (Death)
  Sender: FDA-Public Use
  Company Number: US-MYLANLABS-2024M1050341

PATIENT
  Age: 1 Year
  Sex: Male

DRUGS (7)
  1. CISPLATIN [Suspect]
     Active Substance: CISPLATIN
     Indication: Central nervous system neoplasm
     Dosage: UNK, CYCLE, RECEIVED 3 CYCLES
     Route: 065
  2. ETOPOSIDE [Suspect]
     Active Substance: ETOPOSIDE
     Indication: Central nervous system neoplasm
     Dosage: UNK, CYCLE, RECEIVED 3 CYCLES, LATER RECEIVED 1 CYCLE
     Route: 065
  3. METHOTREXATE [Suspect]
     Active Substance: METHOTREXATE
     Indication: Central nervous system neoplasm
     Dosage: UNK, CYCLE, RECEIVED 3 CYCLES
     Route: 065
  4. CARBOPLATIN [Suspect]
     Active Substance: CARBOPLATIN
     Indication: Central nervous system neoplasm
     Dosage: UNK, RECEIVED 1 CYCLE
     Route: 065
  5. VINCRISTINE [Suspect]
     Active Substance: VINCRISTINE
     Indication: Central nervous system neoplasm
     Dosage: UNK UNK, CYCLE, RECEIVED 3 CYCLES
     Route: 065
  6. CYCLOPHOSPHAMIDE [Suspect]
     Active Substance: CYCLOPHOSPHAMIDE
     Indication: Central nervous system neoplasm
     Dosage: UNK UNK, CYCLE, RECEIVED 3 CYCLES
     Route: 065
  7. THIOTEPA [Suspect]
     Active Substance: THIOTEPA
     Indication: Central nervous system neoplasm
     Dosage: UNK UNK, CYCLE, RECEIVED 1 CYCLE
     Route: 065

REACTIONS (2)
  - Death [Fatal]
  - Off label use [Unknown]
